FAERS Safety Report 15418617 (Version 3)
Quarter: 2018Q4

REPORT INFORMATION
  Report Type: Report from Study
  Country: US (occurrence: US)
  Receive Date: 20180924
  Receipt Date: 20181024
  Transmission Date: 20190204
  Serious: Yes (Other)
  Sender: FDA-Public Use
  Company Number: US-JAZZ-2018-US-014103

PATIENT
  Sex: Female

DRUGS (2)
  1. XYREM [Suspect]
     Active Substance: SODIUM OXYBATE
     Indication: CATAPLEXY
  2. XYREM [Suspect]
     Active Substance: SODIUM OXYBATE
     Indication: NARCOLEPSY
     Dosage: 4.5 G, BID
     Route: 048
     Dates: start: 200809, end: 200811

REACTIONS (13)
  - Skin disorder [Unknown]
  - Haemorrhoid operation [Unknown]
  - Urinary tract infection [Unknown]
  - Arthralgia [Unknown]
  - Obesity [Unknown]
  - Hypothyroidism [Unknown]
  - Osteoarthritis [Unknown]
  - Vitamin D deficiency [Unknown]
  - Hyperlipidaemia [Unknown]
  - Tinnitus [Not Recovered/Not Resolved]
  - Back pain [Unknown]
  - Osteopenia [Not Recovered/Not Resolved]
  - Nasal septal operation [Unknown]

NARRATIVE: CASE EVENT DATE: 2011
